FAERS Safety Report 5205174-0 (Version None)
Quarter: 2007Q1

REPORT INFORMATION
  Report Type: 
  Country: None (occurrence: None)
  Receive Date: 20070110
  Receipt Date: 20061229
  Transmission Date: 20070707
  Serious: No
  Sender: FDA-Public Use
  Company Number: CA-PFIZER INC-2006091055

PATIENT
  Sex: Male
  Weight: 95 kg

DRUGS (4)
  1. VIBRAMYCIN (CAPS) [Suspect]
     Indication: DRUG USE FOR UNKNOWN INDICATION
     Route: 048
  2. DURAGESIC-100 [Suspect]
     Indication: DRUG USE FOR UNKNOWN INDICATION
     Dosage: TEXT:UNKNOWN-FREQ:UNKNOWN
     Route: 062
  3. AMIODARONE HCL [Concomitant]
  4. BIAXIN [Concomitant]

REACTIONS (4)
  - CONVULSION [None]
  - DRUG INTERACTION [None]
  - NO ADVERSE EFFECT [None]
  - TORSADE DE POINTES [None]
